FAERS Safety Report 24367506 (Version 1)
Quarter: 2024Q3

REPORT INFORMATION
  Report Type: Spontaneous
  Country: US (occurrence: US)
  Receive Date: 20240926
  Receipt Date: 20240926
  Transmission Date: 20241016
  Serious: Yes (Hospitalization, Other)
  Sender: DR REDDYS
  Company Number: US-DRL-USA-SPO/USA/24/0013993

PATIENT
  Age: 27 Year
  Sex: Male

DRUGS (7)
  1. LACOSAMIDE [Suspect]
     Active Substance: LACOSAMIDE
     Indication: Temporal lobe epilepsy
  2. LACOSAMIDE [Suspect]
     Active Substance: LACOSAMIDE
  3. LEVETIRACETAM [Suspect]
     Active Substance: LEVETIRACETAM
     Indication: Temporal lobe epilepsy
  4. ESLICARBAZEPINE ACETATE [Suspect]
     Active Substance: ESLICARBAZEPINE ACETATE
     Indication: Temporal lobe epilepsy
  5. TIAGABINE [Suspect]
     Active Substance: TIAGABINE
     Indication: Temporal lobe epilepsy
  6. TIAGABINE [Suspect]
     Active Substance: TIAGABINE
  7. TIAGABINE [Suspect]
     Active Substance: TIAGABINE

REACTIONS (2)
  - Condition aggravated [Unknown]
  - Drug ineffective [Unknown]
